FAERS Safety Report 7493734-6 (Version None)
Quarter: 2011Q2

REPORT INFORMATION
  Report Type: 
  Country: None (occurrence: None)
  Receive Date: 20110520
  Receipt Date: 20110505
  Transmission Date: 20111010
  Serious: Yes (Hospitalization, Other)
  Sender: FDA-Public Use
  Company Number: DE-CELGENEUS-062-50794-11010060

PATIENT
  Age: 70 Year
  Sex: Female
  Weight: 58 kg

DRUGS (10)
  1. VIDAZA [Suspect]
     Dosage: 120 MILLIGRAM
     Route: 058
     Dates: start: 20101122, end: 20101130
  2. ANTITHROMBOTIC AGENTS [Concomitant]
     Indication: THROMBOSIS PROPHYLAXIS
     Route: 065
  3. LOVASTATIN [Concomitant]
     Dosage: 20 MILLIGRAM
     Route: 065
  4. CYCLOKAPRON [Concomitant]
     Dosage: 1000 MILLIGRAM
     Route: 065
  5. ONDANSETRON [Concomitant]
     Dosage: 16 MILLIGRAM
     Route: 065
  6. PANTOPRAZOLE [Concomitant]
     Dosage: 40 MILLIGRAM
     Route: 065
  7. BISOPROLOL FUMARATE [Concomitant]
     Dosage: 10 MILLIGRAM
     Route: 065
  8. VIDAZA [Suspect]
     Dosage: 120 MILLIGRAM
     Route: 058
     Dates: start: 20101227, end: 20101230
  9. VIDAZA [Suspect]
     Dosage: 120 MILLIGRAM
     Route: 058
     Dates: start: 20101027
  10. NITROFURANTOIN [Concomitant]
     Dosage: 200 MILLIGRAM
     Route: 065

REACTIONS (4)
  - CYSTITIS HAEMORRHAGIC [None]
  - MYELODYSPLASTIC SYNDROME TRANSFORMATION [None]
  - HAEMORRHOIDAL HAEMORRHAGE [None]
  - ACUTE MYELOID LEUKAEMIA [None]
